FAERS Safety Report 11772241 (Version 1)
Quarter: 2015Q4

REPORT INFORMATION
  Report Type: Spontaneous
  Country: US (occurrence: US)
  Receive Date: 20151124
  Receipt Date: 20151124
  Transmission Date: 20160304
  Serious: No
  Sender: FDA-Public Use
  Company Number: US-TEVA-563460USA

PATIENT
  Age: 43 Year
  Sex: Female

DRUGS (1)
  1. AZITHROMYCIN [Suspect]
     Active Substance: AZITHROMYCIN ANHYDROUS
     Indication: SINUSITIS
     Route: 065
     Dates: start: 20150513

REACTIONS (3)
  - Fatigue [Unknown]
  - Nausea [Unknown]
  - Diarrhoea [Unknown]
